FAERS Safety Report 4708396-8 (Version None)
Quarter: 2005Q3

REPORT INFORMATION
  Report Type: 
  Country: None (occurrence: None)
  Receive Date: 20050707
  Receipt Date: 20050627
  Transmission Date: 20060218
  Serious: Yes (Hospitalization)
  Sender: FDA-Public Use
  Company Number: CH-ROCHE-409058

PATIENT
  Age: 40 Year
  Sex: Male
  Weight: 78 kg

DRUGS (9)
  1. VALIUM [Suspect]
     Indication: DRUG USE FOR UNKNOWN INDICATION
     Dosage: STRENGTH REPORTED AS 5-10 MG. ROUTE REPORTED AS VIA TUBE.DOSAGE REPORTED AS 3X5MG/DAY.
     Route: 050
     Dates: start: 20040615
  2. TEGRETOL [Concomitant]
     Dates: end: 20040615
  3. NEURONTIN [Concomitant]
     Dosage: ROUTE REPORTED AS VIA TUBE.
     Route: 050
  4. XATRAL [Concomitant]
     Dosage: DRUG XATRAL UNO. ROUTE VIA TUBE. DOSING REGIMEN 1/D.
     Route: 050
  5. VENTOLIN [Concomitant]
     Route: 055
  6. DYNAMUCIL [Concomitant]
  7. DUPHALAC [Concomitant]
  8. TAVANIC [Concomitant]
  9. PARAGOL [Concomitant]

REACTIONS (5)
  - HYPOTHERMIA [None]
  - PNEUMONIA ASPIRATION [None]
  - RESPIRATORY DISORDER [None]
  - SALIVARY HYPERSECRETION [None]
  - TREMOR [None]
